FAERS Safety Report 5878026-0 (Version None)
Quarter: 2008Q3

REPORT INFORMATION
  Report Type: 
  Country: None (occurrence: None)
  Receive Date: 20080911
  Receipt Date: 20070615
  Transmission Date: 20090109
  Serious: Yes (Hospitalization)
  Sender: FDA-Public Use
  Company Number: JP-JNJFOC-20070602695

PATIENT
  Sex: Male

DRUGS (9)
  1. FINIBAX [Suspect]
     Indication: PERITONITIS
     Route: 041
  2. CIPROFLOXACIN HCL [Suspect]
     Indication: DRUG USE FOR UNKNOWN INDICATION
     Route: 042
  3. FLUMARIN [Suspect]
     Indication: DRUG USE FOR UNKNOWN INDICATION
     Route: 042
  4. SOLDEM 1 [Concomitant]
     Route: 041
  5. ALBUMIN (HUMAN) [Concomitant]
     Route: 041
  6. LACTEC [Concomitant]
     Route: 065
  7. POTACOL-R [Concomitant]
     Route: 065
  8. HUMULIN R [Concomitant]
     Route: 065
  9. ATARAX [Concomitant]
     Route: 042

REACTIONS (4)
  - DRUG TOXICITY [None]
  - EOSINOPHIL COUNT INCREASED [None]
  - GASTROENTERITIS STAPHYLOCOCCAL [None]
  - WHITE BLOOD CELL COUNT DECREASED [None]
